FAERS Safety Report 9542721 (Version 1)
Quarter: 2013Q3

REPORT INFORMATION
  Report Type: Report from Study
  Country: US (occurrence: US)
  Receive Date: 20130923
  Receipt Date: 20130923
  Transmission Date: 20140515
  Serious: Yes (Other)
  Sender: FDA-Public Use
  Company Number: US-SANOFI-AVENTIS-2013SA092561

PATIENT
  Age: 59 Year
  Sex: Female

DRUGS (3)
  1. AUBAGIO [Suspect]
     Indication: MULTIPLE SCLEROSIS
     Route: 048
     Dates: end: 201307
  2. AUBAGIO [Suspect]
     Indication: MULTIPLE SCLEROSIS
     Route: 048
  3. METFORMIN [Concomitant]

REACTIONS (4)
  - Gallbladder disorder [Unknown]
  - Gastric disorder [Unknown]
  - Diarrhoea [Unknown]
  - Drug dose omission [Unknown]
